FAERS Safety Report 7782202-X (Version None)
Quarter: 2011Q3

REPORT INFORMATION
  Report Type: 
  Country: None (occurrence: None)
  Receive Date: 20110927
  Receipt Date: 20110922
  Transmission Date: 20111222
  Serious: Yes (Hospitalization)
  Sender: FDA-Public Use
  Company Number: US-SANOFI-AVENTIS-2011SA062009

PATIENT
  Sex: Female

DRUGS (1)
  1. PLAVIX [Suspect]
     Route: 048
     Dates: start: 20060101

REACTIONS (4)
  - SKIN MASS [None]
  - ABDOMINAL PAIN UPPER [None]
  - POST PROCEDURAL INFECTION [None]
  - CONTUSION [None]
